FAERS Safety Report 20299353 (Version 1)
Quarter: 2022Q1

REPORT INFORMATION
  Report Type: Spontaneous
  Country: DE (occurrence: DE)
  Receive Date: 20220105
  Receipt Date: 20220105
  Transmission Date: 20220423
  Serious: Yes (Hospitalization)
  Sender: FDA-Public Use
  Company Number: DE-ADRED-05259-02

PATIENT
  Age: 51 Year
  Sex: Male
  Weight: 112 kg

DRUGS (18)
  1. SIMVASTATIN [Suspect]
     Active Substance: SIMVASTATIN
     Indication: Product used for unknown indication
     Dosage: 40 MILLIGRAM,40 MG, 0-0-1-0, TABLETTEN
     Route: 048
  2. MELATONIN [Suspect]
     Active Substance: MELATONIN
     Indication: Product used for unknown indication
     Dosage: SELBSTMEDIKATION
  3. HYDROCHLOROTHIAZIDE\RAMIPRIL [Suspect]
     Active Substance: HYDROCHLOROTHIAZIDE\RAMIPRIL
     Indication: Product used for unknown indication
     Dosage: 25|5 MG, 1-0-0-0, TABLETTEN
     Route: 048
  4. PROMETHAZINE [Suspect]
     Active Substance: PROMETHAZINE HYDROCHLORIDE
     Indication: Product used for unknown indication
     Dosage: 20 MILLIGRAM PER MILLILITRE,20 MG/ML, BEI BEDARF, TROPFEN
     Route: 048
  5. HERBALS [Suspect]
     Active Substance: HERBALS
     Indication: Product used for unknown indication
     Dosage: UNK, SELBSTMEDIKATION
  6. MIRTAZAPINE [Suspect]
     Active Substance: MIRTAZAPINE
     Indication: Product used for unknown indication
     Dosage: 15 MILLIGRAM,15 MG, 0-0-0-0.5, TABLETTEN
     Route: 048
  7. ENOXAPARIN [Concomitant]
     Active Substance: ENOXAPARIN
     Dosage: 40 MG/0.4ML, 0-0-1-0, FERTIGSPRITZEN
     Route: 058
  8. METOPROLOL [Concomitant]
     Active Substance: METOPROLOL
     Dosage: 95 MILLIGRAM,95 MG, 1-0-1-0, RETARD-TABLETTEN
     Route: 048
  9. ASPIRIN [Concomitant]
     Active Substance: ASPIRIN
     Dosage: 100 MILLIGRAM,100 MG, 0-1-0-0, TABLETTEN
     Route: 048
  10. IBUPROFEN [Concomitant]
     Active Substance: IBUPROFEN
     Dosage: 800 MILLIGRAM,800 MG, BEI BEDARF, TABLETTEN
     Route: 048
  11. LORAZEPAM [Concomitant]
     Active Substance: LORAZEPAM
     Dosage: 1 MILLIGRAM,1 MG, 1-1-1-0, SCHMELZTABLETTEN
     Route: 060
  12. LERCANIDIPINE [Concomitant]
     Active Substance: LERCANIDIPINE
     Dosage: 10 MILLIGRAM,10 MG, 1-0-1-0, TABLETTEN
     Route: 048
  13. VICTOZA [Concomitant]
     Active Substance: LIRAGLUTIDE
     Dosage: 6 MILLIGRAM PER MILLILITRE,6 MG/ML, 0-0-0.6-0, FERTIGSPRITZEN
     Route: 058
  14. RAMIPRIL [Concomitant]
     Active Substance: RAMIPRIL
     Dosage: 5 MILLIGRAM,5 MG, 1-0-1-0, TABLETTEN
     Route: 048
  15. Mariendistel [Concomitant]
     Dosage: UNK, SELBSTMEDIKATION
  16. METFORMIN [Concomitant]
     Active Substance: METFORMIN HYDROCHLORIDE
     Dosage: 1000 MILLIGRAM,1000 MG, 1-0-1-0, TABLETTEN
     Route: 048
  17. NITROGLYCERIN [Concomitant]
     Active Substance: NITROGLYCERIN
     Dosage: UNK,0.4 MG/HUB, BEI BEDARF, LOSUNG
     Route: 060
  18. DIHYDRALAZINE SULFATE [Concomitant]
     Active Substance: DIHYDRALAZINE SULFATE
     Dosage: 25 MILLIGRAM,25 MG, 1-0-1-0, TABLETTEN
     Route: 048

REACTIONS (6)
  - Cholelithiasis [Unknown]
  - Gallbladder enlargement [Unknown]
  - Abdominal pain upper [Unknown]
  - Contraindicated product administered [Unknown]
  - Labelled drug-drug interaction medication error [Unknown]
  - Product monitoring error [Unknown]
